FAERS Safety Report 9928074 (Version 1)
Quarter: 2014Q1

REPORT INFORMATION
  Report Type: Spontaneous
  Country: US (occurrence: None)
  Receive Date: 20140226
  Receipt Date: 20140226
  Transmission Date: 20141002
  Serious: Yes (Other)
  Sender: FDA-Public Use
  Company Number: None

PATIENT
  Age: 70 Year
  Sex: Female

DRUGS (1)
  1. NORDITROPIN [Suspect]
     Indication: DWARFISM
     Dates: start: 20120427

REACTIONS (3)
  - Central nervous system inflammation [None]
  - Vertigo [None]
  - Nausea [None]
